FAERS Safety Report 9734608 (Version 5)
Quarter: 2014Q2

REPORT INFORMATION
  Report Type: Report from Study
  Country: JP (occurrence: JP)
  Receive Date: 20131206
  Receipt Date: 20140508
  Transmission Date: 20141212
  Serious: Yes (Hospitalization)
  Sender: FDA-Public Use
  Company Number: JP-BEH-2013038513

PATIENT
  Age: 15 Year
  Sex: Female
  Weight: 50.1 kg

DRUGS (8)
  1. IGPRO20 [Suspect]
     Indication: PRIMARY IMMUNODEFICIENCY SYNDROME
     Dosage: STOP DATE: ONGOING
     Route: 058
     Dates: start: 20120130
  2. MUCODYNE [Concomitant]
     Indication: CHRONIC SINUSITIS
     Dosage: TREATMENT PERIOD: CURRENTLY IN TREATMENT
     Route: 048
     Dates: start: 20101130
  3. MUCODYNE [Concomitant]
     Indication: CHRONIC SINUSITIS
     Dosage: TREATMENT PERIOD: CURRENTLY IN TREATMENT
     Route: 048
     Dates: start: 20101130
  4. MUCODYNE [Concomitant]
     Indication: BRONCHITIS CHRONIC
     Dosage: TREATMENT PERIOD: CURRENTLY IN TREATMENT
     Route: 048
     Dates: start: 20101130
  5. LEFTOSE [Concomitant]
     Indication: CHRONIC SINUSITIS
     Dosage: TREATMENT PERIOD: CURRENTLY IN TREATMENT
     Route: 048
     Dates: start: 20101130
  6. LEFTOSE [Concomitant]
     Indication: CHRONIC SINUSITIS
     Dosage: TREATMENT PERIOD: CURRENTLY IN TREATMENT
     Route: 048
     Dates: start: 20101130
  7. LEFTOSE [Concomitant]
     Indication: BRONCHITIS CHRONIC
     Dosage: TREATMENT PERIOD: CURRENTLY IN TREATMENT
     Route: 048
     Dates: start: 20101130
  8. CLARITH [Concomitant]

REACTIONS (1)
  - Asthma [Not Recovered/Not Resolved]
